FAERS Safety Report 16777966 (Version 1)
Quarter: 2019Q3

REPORT INFORMATION
  Report Type: Spontaneous
  Country: US (occurrence: US)
  Receive Date: 20190905
  Receipt Date: 20190905
  Transmission Date: 20191005
  Serious: Yes (Hospitalization)
  Sender: FDA-Public Use
  Company Number: US-SHIRE-US201925978

PATIENT
  Age: 59 Year
  Sex: Female
  Weight: 81.63 kg

DRUGS (4)
  1. NATPARA (PARATHYROID HORMONE) [Suspect]
     Active Substance: PARATHYROID HORMONE
     Dosage: 50 MICROGRAM, 1X/DAY:QD
     Route: 065
     Dates: start: 20190803
  2. NATPARA (PARATHYROID HORMONE) [Suspect]
     Active Substance: PARATHYROID HORMONE
     Indication: HYPOPARATHYROIDISM
     Dosage: 50 MICROGRAM, 1X/DAY:QD
     Route: 065
     Dates: start: 20180108, end: 20190803
  3. TUMS [Concomitant]
     Active Substance: CALCIUM CARBONATE
     Indication: HYPOPARATHYROIDISM
  4. CALCITRAL [Concomitant]
     Indication: HYPOPARATHYROIDISM

REACTIONS (8)
  - Hospitalisation [Recovering/Resolving]
  - Inability to afford medication [Unknown]
  - Hypoaesthesia [Unknown]
  - Dysmorphism [Unknown]
  - Lip swelling [Unknown]
  - Muscle spasms [Unknown]
  - Product dose omission [Recovering/Resolving]
  - Pharyngeal hypoaesthesia [Unknown]

NARRATIVE: CASE EVENT DATE: 20190803
